FAERS Safety Report 8876802 (Version 1)
Quarter: 2012Q4

REPORT INFORMATION
  Report Type: 
  Country: US (occurrence: US)
  Receive Date: 20121029
  Receipt Date: 20121029
  Transmission Date: 20130627
  Serious: No
  Sender: FDA-Public Use
  Company Number: US-PFIZER INC-2012266960

PATIENT
  Age: 62 Year
  Sex: Female
  Weight: 77.1 kg

DRUGS (3)
  1. CELEBREX [Suspect]
     Indication: LOW BACK PAIN
     Dosage: 200 mg, 2x/day
     Dates: end: 201209
  2. CELEBREX [Suspect]
     Indication: KNEE PAIN
  3. CELEBREX [Suspect]
     Indication: PAIN IN LEG

REACTIONS (2)
  - Pain [Not Recovered/Not Resolved]
  - Spinal disorder [Unknown]
